FAERS Safety Report 14505550 (Version 1)
Quarter: 2018Q1

REPORT INFORMATION
  Report Type: Spontaneous
  Country: ZA (occurrence: ZA)
  Receive Date: 20180208
  Receipt Date: 20180208
  Transmission Date: 20180509
  Serious: Yes (Hospitalization)
  Sender: FDA-Public Use
  Company Number: ZA-MYLANLABS-2018M1007821

PATIENT
  Sex: Female

DRUGS (8)
  1. DOPAQUEL [Concomitant]
     Active Substance: QUETIAPINE
     Indication: DRUG THERAPY
     Dosage: UNK
     Route: 048
  2. SERDEP                             /00724402/ [Concomitant]
     Active Substance: FLUOXETINE HYDROCHLORIDE
     Indication: DEPRESSION
     Dosage: UNK
     Route: 048
  3. ZOLPIDEM [Concomitant]
     Active Substance: ZOLPIDEM\ZOLPIDEM TARTRATE
     Indication: SLEEP DISORDER
     Dosage: UNK
     Route: 048
  4. ZOPAX [Concomitant]
     Indication: ANXIETY
     Dosage: UNK
     Route: 048
  5. MYLAN QUETIAPINE 300 [Suspect]
     Active Substance: QUETIAPINE
     Indication: DRUG THERAPY
     Dosage: UNK
     Route: 048
  6. TRAMAZAC CO [Concomitant]
     Active Substance: ACETAMINOPHEN\TRAMADOL
     Indication: PAIN
     Dosage: UNK
     Route: 048
  7. BE-TABS PREDNISONE [Concomitant]
     Active Substance: PREDNISONE
     Indication: PRODUCT USED FOR UNKNOWN INDICATION
     Dosage: UNK
     Route: 048
  8. ASTHAVENT                          /00139501/ [Concomitant]
     Indication: ASTHMA
     Dosage: UNK
     Route: 055

REACTIONS (2)
  - Arthritis [Unknown]
  - Lower limb fracture [Unknown]
